FAERS Safety Report 13063461 (Version 1)
Quarter: 2016Q4

REPORT INFORMATION
  Report Type: Spontaneous
  Country: DE (occurrence: DE)
  Receive Date: 20161227
  Receipt Date: 20161227
  Transmission Date: 20170207
  Serious: Yes (Death, Other)
  Sender: FDA-Public Use
  Company Number: DE-ELI_LILLY_AND_COMPANY-DE201612008875

PATIENT
  Age: 75 Year
  Sex: Male

DRUGS (4)
  1. ZYPREXA [Suspect]
     Active Substance: OLANZAPINE
     Indication: PRODUCT USED FOR UNKNOWN INDICATION
     Dosage: 40 MG, QD
     Route: 065
  2. ZYPREXA [Suspect]
     Active Substance: OLANZAPINE
     Dosage: 10 MG, QD
     Route: 065
  3. ZYPREXA [Suspect]
     Active Substance: OLANZAPINE
     Dosage: 20 MG, QD
     Route: 065
  4. HALDOL [Suspect]
     Active Substance: HALOPERIDOL
     Indication: PRODUCT USED FOR UNKNOWN INDICATION
     Dosage: 16 MG, QD
     Route: 065
     Dates: end: 20160723

REACTIONS (18)
  - Sepsis [Unknown]
  - Motor dysfunction [Fatal]
  - Muscle rigidity [Unknown]
  - Cachexia [Fatal]
  - Dysphagia [Fatal]
  - Pneumonia aspiration [Unknown]
  - General physical health deterioration [Unknown]
  - Cerebellar syndrome [Unknown]
  - Dry mouth [Unknown]
  - Dysarthria [Unknown]
  - Eye movement disorder [Unknown]
  - Neuroleptic malignant syndrome [Unknown]
  - Malnutrition [Fatal]
  - Gait disturbance [Unknown]
  - Body temperature increased [Unknown]
  - Bradyphrenia [Unknown]
  - Cough [Unknown]
  - Overdose [Unknown]

NARRATIVE: CASE EVENT DATE: 20160414
